FAERS Safety Report 9201387 (Version 1)
Quarter: 2013Q2

REPORT INFORMATION
  Report Type: Spontaneous
  Country: US (occurrence: US)
  Receive Date: 20130401
  Receipt Date: 20130401
  Transmission Date: 20140414
  Serious: No
  Sender: FDA-Public Use
  Company Number: US-ELI_LILLY_AND_COMPANY-US201303007943

PATIENT
  Sex: Female

DRUGS (3)
  1. CYMBALTA [Suspect]
     Indication: OBSESSIVE-COMPULSIVE DISORDER
     Dosage: 60 MG, EACH MORNING
     Dates: end: 201301
  2. ARMOUR THYROID [Concomitant]
  3. ADVIL                              /00109201/ [Concomitant]
     Dosage: 2 DF, PRN

REACTIONS (6)
  - Hepatic steatosis [Unknown]
  - Liver function test abnormal [Unknown]
  - Hypotension [Unknown]
  - Intentional drug misuse [Unknown]
  - Off label use [Unknown]
  - Weight increased [Unknown]
